FAERS Safety Report 4823620-9 (Version None)
Quarter: 2005Q4

REPORT INFORMATION
  Report Type: 
  Country: None (occurrence: None)
  Receive Date: 20051107
  Receipt Date: 20051025
  Transmission Date: 20060501
  Serious: Yes (Death, Life-Threatening, Hospitalization)
  Sender: FDA-Public Use
  Company Number: HQWYE238225OCT05

PATIENT
  Age: 80 Year
  Sex: Male

DRUGS (7)
  1. AMIODARONE HCL [Suspect]
     Indication: ATRIAL FIBRILLATION
  2. BENDROFLUAZIDE (BENDROFLUMETHIAZIDE) [Concomitant]
  3. LISINOPRIL [Concomitant]
  4. GLICLAZIDE (GLICLAZIDE) [Concomitant]
  5. GTN (GLYCERYL TRINITRATE) [Concomitant]
  6. DICLOFENAC (DICLOFENAC) [Concomitant]
  7. CO-DYDRAMOL (DIHYDROCODEINE BITARTRATE/PARACETAMOL) [Concomitant]

REACTIONS (20)
  - ACIDOSIS [None]
  - ANURIA [None]
  - ARTERIOSCLEROSIS CORONARY ARTERY [None]
  - BLOOD POTASSIUM DECREASED [None]
  - BRAIN HYPOXIA [None]
  - CARDIAC ARREST [None]
  - CEREBELLAR HAEMORRHAGE [None]
  - CORONARY ARTERY STENOSIS [None]
  - DECEREBRATION [None]
  - FALL [None]
  - HAEMORRHAGIC INFARCTION [None]
  - HEAD INJURY [None]
  - HYPERTENSION [None]
  - HYPOTENSION [None]
  - LACERATION [None]
  - LOSS OF CONSCIOUSNESS [None]
  - MYOCARDIAL INFARCTION [None]
  - RENAL INFARCT [None]
  - TORSADE DE POINTES [None]
  - VENTRICULAR FIBRILLATION [None]
